FAERS Safety Report 18239779 (Version 1)
Quarter: 2020Q3

REPORT INFORMATION
  Report Type: Report from Study
  Country: None (occurrence: US)
  Receive Date: 20200908
  Receipt Date: 20200908
  Transmission Date: 20201103
  Serious: Yes (Other)
  Sender: FDA-Public Use
  Company Number: US-ABBVIE-20K-163-3522958-00

PATIENT
  Age: 49 Year
  Sex: Female

DRUGS (1)
  1. HUMIRA [Suspect]
     Active Substance: ADALIMUMAB
     Indication: PSORIATIC ARTHROPATHY
     Route: 058
     Dates: start: 20200630

REACTIONS (12)
  - Joint swelling [Not Recovered/Not Resolved]
  - Vision blurred [Unknown]
  - Gait disturbance [Not Recovered/Not Resolved]
  - Joint stiffness [Not Recovered/Not Resolved]
  - Hyperhidrosis [Unknown]
  - Myalgia [Unknown]
  - Pain [Not Recovered/Not Resolved]
  - Asthma [Unknown]
  - Arthralgia [Not Recovered/Not Resolved]
  - Menopausal symptoms [Unknown]
  - Burning sensation [Unknown]
  - Contusion [Unknown]

NARRATIVE: CASE EVENT DATE: 2020
